FAERS Safety Report 7720105-7 (Version None)
Quarter: 2011Q3

REPORT INFORMATION
  Report Type: 
  Country: None (occurrence: None)
  Receive Date: 20110824
  Receipt Date: 20110809
  Transmission Date: 20111222
  Serious: Yes (Hospitalization, Other)
  Sender: FDA-Public Use
  Company Number: 2011MA011558

PATIENT
  Age: 16 Year
  Sex: Male

DRUGS (3)
  1. ZUCLOPENTHIXOL (ZUCLOPENTHIXOL) [Suspect]
     Indication: BIPOLAR DISORDER
     Dosage: 25 MG;
  2. DIAZEPAM [Suspect]
     Indication: BIPOLAR DISORDER
     Dosage: 20 MG;TID;
  3. HALOPERIDOL [Suspect]
     Indication: BIPOLAR DISORDER
     Dosage: 1.5 MG;BID;

REACTIONS (7)
  - NEUROLEPTIC MALIGNANT SYNDROME [None]
  - TACHYCARDIA [None]
  - BLOOD CREATINE PHOSPHOKINASE INCREASED [None]
  - PSYCHOTIC DISORDER [None]
  - AGITATION [None]
  - MUSCLE RIGIDITY [None]
  - HYPERHIDROSIS [None]
